FAERS Safety Report 8070774-X (Version None)
Quarter: 2012Q1

REPORT INFORMATION
  Report Type: 
  Country: None (occurrence: None)
  Receive Date: 20120125
  Receipt Date: 20120118
  Transmission Date: 20120608
  Serious: Yes (Other)
  Sender: FDA-Public Use
  Company Number: JP-TEVA-2011004765

PATIENT
  Age: 77 Year
  Sex: Male
  Weight: 58 kg

DRUGS (10)
  1. FEXOFENADINE HYDROCHLORIDE [Concomitant]
  2. ACYCLOVIR [Concomitant]
     Dates: start: 20110307
  3. BENDAMUSTINE [Suspect]
     Route: 042
     Dates: start: 20110330
  4. SULFAMETHOXAZOLE AND TRIMETHOPRIM [Concomitant]
  5. MAGNESIUM OXIDE [Concomitant]
  6. REBAMIPIDE [Concomitant]
  7. BENDAMUSTINE [Suspect]
     Indication: MANTLE CELL LYMPHOMA
     Route: 042
     Dates: start: 20110301, end: 20110302
  8. RITUXIMAB [Concomitant]
     Dates: start: 20110329, end: 20110628
  9. ZOLPIDEM TARTRATE [Concomitant]
  10. LANSOPRAZOLE [Concomitant]

REACTIONS (1)
  - DIVERTICULITIS INTESTINAL HAEMORRHAGIC [None]
